FAERS Safety Report 7182917-0 (Version None)
Quarter: 2010Q4

REPORT INFORMATION
  Report Type: 
  Country: None (occurrence: None)
  Receive Date: 20101209
  Receipt Date: 20101126
  Transmission Date: 20110411
  Serious: Yes (Other)
  Sender: FDA-Public Use
  Company Number: CH-1184247

PATIENT
  Age: 9 Month
  Sex: Male

DRUGS (1)
  1. CYCLOGYL [Suspect]
     Indication: OPHTHALMOLOGICAL EXAMINATION
     Dosage: 1 GTT 1X/30 MINUTES OPHTHALMIC
     Route: 047
     Dates: start: 20100301, end: 20100301

REACTIONS (2)
  - FLUSHING [None]
  - OVERDOSE [None]
